FAERS Safety Report 6999677-6 (Version None)
Quarter: 2010Q3

REPORT INFORMATION
  Report Type: 
  Country: None (occurrence: None)
  Receive Date: 20100920
  Receipt Date: 20100909
  Transmission Date: 20110219
  Serious: Yes (Other)
  Sender: FDA-Public Use
  Company Number: PHFR2010GB03266

PATIENT
  Sex: Female

DRUGS (3)
  1. CLOZARIL [Suspect]
     Indication: SCHIZOPHRENIA
     Dosage: 325 MG
     Route: 048
     Dates: start: 20091215
  2. LITHIUM CARBONATE [Concomitant]
  3. FLUOXETINE [Concomitant]

REACTIONS (4)
  - CONVULSION [None]
  - DRUG ABUSE [None]
  - TACHYCARDIA [None]
  - WEIGHT INCREASED [None]
